FAERS Safety Report 12211730 (Version 2)
Quarter: 2016Q2

REPORT INFORMATION
  Report Type: Spontaneous
  Country: US (occurrence: US)
  Receive Date: 20160325
  Receipt Date: 20160408
  Transmission Date: 20160815
  Serious: No
  Sender: FDA-Public Use
  Company Number: US-VERTEX PHARMACEUTICALS-2016-001969

PATIENT
  Sex: Male

DRUGS (17)
  1. ZITHROMAX [Concomitant]
     Active Substance: AZITHROMYCIN DIHYDRATE
     Dosage: 1 DF, 3 TIMES EVERY WEEK ON MONDAYS, WEDNESDAYS AND FRIDAYS
     Route: 048
  2. SEREVENT N [Concomitant]
     Dosage: INHALE 1 PUFF IN THE MORNING AND EVENING APPROXIMATELY 12 HOURS APART, BID
     Route: 055
  3. VITAMIN D3 [Concomitant]
     Active Substance: CHOLECALCIFEROL
     Dosage: 1 DF, QD
     Route: 048
  4. PRILOSEC [Concomitant]
     Active Substance: OMEPRAZOLE MAGNESIUM
     Dosage: DELAYED RELEASE, 1 DF, QD BEFORE MEAL
  5. RHINOCORT AQUA [Concomitant]
     Active Substance: BUDESONIDE
     Dosage: 2 SPRAY BY INTRANASAL ROUTE INTO EACH ROUTE, QD
     Route: 055
  6. CAYSTON [Concomitant]
     Active Substance: AZTREONAM
     Dosage: 1 AMPULE, TID EVERYDAY EVERY OTHER 28 DAY PERIOD ALT WITH TOBI PODHALER
     Route: 055
  7. ORKAMBI [Suspect]
     Active Substance: IVACAFTOR\LUMACAFTOR
     Indication: CYSTIC FIBROSIS
     Dosage: UNK
     Route: 048
     Dates: start: 20151125
  8. LANTUS [Concomitant]
     Active Substance: INSULIN GLARGINE
     Dosage: 3 ML
     Route: 058
  9. PULMOZYME [Concomitant]
     Active Substance: DORNASE ALFA
     Dosage: 2.5 MG, QD VIA NEBULIZER
     Route: 055
  10. XARELTO [Concomitant]
     Active Substance: RIVAROXABAN
     Dosage: 1 DF, QD, WITH EVENING MEAL
     Route: 048
  11. CREON [Concomitant]
     Active Substance: PANCRELIPASE AMYLASE\PANCRELIPASE LIPASE\PANCRELIPASE PROTEASE
     Dosage: 24,000-76,000-120,000 UNIT CAPSULE, DELAYED RELEASE, 2 DF WITH MEALS AND SNACKS
     Route: 048
  12. TUMS [Concomitant]
     Active Substance: CALCIUM CARBONATE
     Dosage: 1 DF, TID
     Route: 048
  13. AQUADEKS [Concomitant]
     Active Substance: MINERALS\VITAMINS
  14. HYPERTONIC SALINE SOLUTION [Concomitant]
     Active Substance: SODIUM CHLORIDE
     Dosage: INHALE 1 , BID
     Route: 055
  15. TOBI [Concomitant]
     Active Substance: TOBRAMYCIN
     Dosage: 4 DF (112MG), BID FOR 28 DAYS ALTERNATING WITH CAYSTON
     Route: 055
  16. ATORVASTATIN [Concomitant]
     Active Substance: ATORVASTATIN
     Dosage: 1 DF, QD AT BEDTIME
  17. ALBUTEROL SULFATE. [Concomitant]
     Active Substance: ALBUTEROL SULFATE
     Dosage: ACTUATION AEROSOL INHALER INHALE 2 PUFF BY INHALATION ROUTE 4-6 HOURS, PRN
     Route: 055

REACTIONS (1)
  - Drug screen false positive [Unknown]

NARRATIVE: CASE EVENT DATE: 2016
